FAERS Safety Report 9680227 (Version 1)
Quarter: 2013Q4

REPORT INFORMATION
  Report Type: Spontaneous
  Country: US (occurrence: US)
  Receive Date: 20131111
  Receipt Date: 20131111
  Transmission Date: 20140711
  Serious: No
  Sender: FDA-Public Use
  Company Number: US-BIOGENIDEC-2013BI106710

PATIENT
  Sex: Female

DRUGS (11)
  1. TYSABRI [Suspect]
     Indication: MULTIPLE SCLEROSIS
     Route: 042
  2. TECFIDERA [Concomitant]
     Indication: MULTIPLE SCLEROSIS
     Dates: start: 20130711
  3. TECFIDERA [Concomitant]
     Indication: MULTIPLE SCLEROSIS
  4. SANCTURA XR [Concomitant]
  5. NORVASC [Concomitant]
  6. LIPITOR [Concomitant]
  7. TRAMADOL HCL [Concomitant]
  8. GABAPENTIN [Concomitant]
  9. LISINOPRIL HCTZ [Concomitant]
  10. BACLOFEN [Concomitant]
  11. VITAMIN D3 [Concomitant]

REACTIONS (1)
  - Hypersensitivity [Unknown]
